FAERS Safety Report 6055939-0 (Version None)
Quarter: 2009Q1

REPORT INFORMATION
  Report Type: 
  Country: None (occurrence: None)
  Receive Date: 20090128
  Receipt Date: 20090115
  Transmission Date: 20090719
  Serious: Yes (Other)
  Sender: FDA-Public Use
  Company Number: CH-B.I. PHARMACEUTICALS,INC./RIDGEFIELD-2009-SI-00001SI

PATIENT
  Age: 52 Year
  Sex: Female

DRUGS (7)
  1. SIFROL [Suspect]
     Indication: RESTLESS LEGS SYNDROME
     Dosage: .25MG
     Route: 048
     Dates: start: 20080601
  2. ARIMIDEX [Suspect]
     Indication: BREAST CANCER IN SITU
     Route: 048
     Dates: start: 20070601
  3. HERCEPTIN [Suspect]
     Indication: BREAST CANCER IN SITU
     Dates: start: 20070401, end: 20080301
  4. ATACAND [Concomitant]
  5. PAROXETINE HCL [Concomitant]
     Dosage: 10MG
     Route: 048
  6. NEXIUM [Concomitant]
     Dosage: AS NECESSARY
     Route: 048
  7. PADMED CIRCOSAN [Concomitant]
     Route: 048

REACTIONS (1)
  - RETINOPATHY [None]
